FAERS Safety Report 8001767 (Version 2)
Quarter: 2012Q4

REPORT INFORMATION
  Report Type: 
  Country: US (occurrence: US)
  Receive Date: 20110622
  Receipt Date: 20121031
  Transmission Date: 20130627
  Serious: Yes (Other)
  Sender: FDA-Public Use
  Company Number: US-ROCHE-782907

PATIENT
  Age: 22 Year
  Sex: Male
  Weight: 68.1 kg

DRUGS (6)
  1. ACCUTANE [Suspect]
     Indication: ACNE
     Route: 048
     Dates: start: 20021209, end: 200301
  2. AMNESTEEM [Suspect]
     Indication: ACNE
     Route: 048
     Dates: start: 20030123, end: 200305
  3. AMNESTEEM [Suspect]
     Route: 048
     Dates: start: 200312, end: 200401
  4. AMNESTEEM [Suspect]
     Route: 048
     Dates: start: 20040401, end: 200405
  5. CLARAVIS [Suspect]
     Indication: ACNE
     Route: 048
     Dates: start: 20040126, end: 200403
  6. ERYTHROMYCIN [Concomitant]
     Indication: ACNE

REACTIONS (6)
  - Crohn^s disease [Unknown]
  - Inflammatory bowel disease [Unknown]
  - Anxiety [Unknown]
  - Stress [Unknown]
  - Anal fissure [Unknown]
  - Haemorrhoids [Unknown]
